FAERS Safety Report 24726867 (Version 1)
Quarter: 2024Q4

REPORT INFORMATION
  Report Type: Spontaneous
  Country: AT (occurrence: AT)
  Receive Date: 20241212
  Receipt Date: 20241212
  Transmission Date: 20250115
  Serious: Yes (Other)
  Sender: PFIZER
  Company Number: AT-PFIZER INC-PV202400161153

PATIENT
  Age: 82 Year
  Sex: Female

DRUGS (1)
  1. LORLATINIB [Suspect]
     Active Substance: LORLATINIB
     Indication: Non-small cell lung cancer metastatic
     Dosage: UNK
     Dates: start: 202311, end: 202408

REACTIONS (3)
  - Polyneuropathy [Unknown]
  - Oedema [Unknown]
  - Cardiac disorder [Unknown]
